FAERS Safety Report 6072241-1 (Version None)
Quarter: 2009Q1

REPORT INFORMATION
  Report Type: 
  Country: None (occurrence: None)
  Receive Date: 20090206
  Receipt Date: 20090206
  Transmission Date: 20090719
  Serious: Yes (Hospitalization)
  Sender: FDA-Public Use
  Company Number: None

PATIENT
  Sex: Female
  Weight: 82.55 kg

DRUGS (2)
  1. CARBOPLATIN [Suspect]
     Dosage: 350 MG
  2. TAXOL [Suspect]
     Dosage: 500 MG

REACTIONS (8)
  - COUGH [None]
  - DYSPNOEA EXERTIONAL [None]
  - INFLUENZA [None]
  - NAUSEA [None]
  - NEUTROPHIL COUNT DECREASED [None]
  - OROPHARYNGEAL PAIN [None]
  - WHEEZING [None]
  - WHITE BLOOD CELL COUNT DECREASED [None]
